FAERS Safety Report 11959497 (Version 2)
Quarter: 2016Q1

REPORT INFORMATION
  Report Type: Report from Study
  Country: US (occurrence: US)
  Receive Date: 20160126
  Receipt Date: 20160225
  Transmission Date: 20160526
  Serious: No
  Sender: FDA-Public Use
  Company Number: US-AMGEN-USASL2016007832

PATIENT
  Age: 49 Year
  Sex: Female

DRUGS (2)
  1. METHOTREXATE [Suspect]
     Active Substance: METHOTREXATE
     Indication: PRODUCT USED FOR UNKNOWN INDICATION
     Dosage: UNK
     Route: 065
  2. ENBREL [Suspect]
     Active Substance: ETANERCEPT
     Indication: RHEUMATOID ARTHRITIS
     Dosage: 50 MG, QWK
     Route: 065
     Dates: start: 20151220

REACTIONS (13)
  - Palpitations [Not Recovered/Not Resolved]
  - Condition aggravated [Unknown]
  - Hyperventilation [Unknown]
  - Injection site pain [Unknown]
  - Anxiety [Unknown]
  - Nasopharyngitis [Unknown]
  - Cough [Unknown]
  - Productive cough [Unknown]
  - Injection site bruising [Unknown]
  - Pyrexia [Unknown]
  - Injection site discolouration [Unknown]
  - Wheezing [Unknown]
  - Chest discomfort [Unknown]

NARRATIVE: CASE EVENT DATE: 201602
